FAERS Safety Report 9511422 (Version 2)
Quarter: 2013Q3

REPORT INFORMATION
  Report Type: Report from Study
  Country: JP (occurrence: JP)
  Receive Date: 20130910
  Receipt Date: 20130910
  Transmission Date: 20140515
  Serious: Yes (Hospitalization)
  Sender: FDA-Public Use
  Company Number: JP-BRISTOL-MYERS SQUIBB COMPANY-17332255

PATIENT
  Age: 57 Year
  Sex: Male
  Weight: 71 kg

DRUGS (5)
  1. ARIPIPRAZOLE IM DEPOT [Suspect]
     Indication: SCHIZOPHRENIA
     Route: 030
     Dates: start: 20120330, end: 20130104
  2. LIPIDIL [Concomitant]
     Dosage: TAB
     Dates: start: 20120217
  3. RESTAMIN [Concomitant]
     Dosage: TAB
     Dates: start: 20120720, end: 20130122
  4. ZYRTEC [Concomitant]
     Dosage: TAB
     Dates: start: 20120127
  5. HALCION [Concomitant]
     Dosage: TAB
     Dates: start: 20120113, end: 20130122

REACTIONS (1)
  - Schizophrenia [Recovered/Resolved]
